FAERS Safety Report 17133991 (Version 2)
Quarter: 2019Q4

REPORT INFORMATION
  Report Type: Spontaneous
  Country: IT (occurrence: IT)
  Receive Date: 20191210
  Receipt Date: 20191213
  Transmission Date: 20200122
  Serious: Yes (Life-Threatening, Hospitalization, Other)
  Sender: FDA-Public Use
  Company Number: IT-MYLANLABS-2019M1121983

PATIENT
  Age: 62 Year
  Sex: Male

DRUGS (2)
  1. IMATINIB. [Suspect]
     Active Substance: IMATINIB MESYLATE
     Indication: ACUTE MYELOID LEUKAEMIA
     Dosage: 100 MILLIGRAM, QD
     Route: 065
  2. IMATINIB. [Suspect]
     Active Substance: IMATINIB MESYLATE
     Indication: GRAFT VERSUS HOST DISEASE

REACTIONS (9)
  - Multiple organ dysfunction syndrome [Recovering/Resolving]
  - Confusional state [Recovering/Resolving]
  - Pericardial effusion [Recovering/Resolving]
  - Condition aggravated [Recovering/Resolving]
  - Intestinal congestion [Recovering/Resolving]
  - Hepatic congestion [Recovering/Resolving]
  - Lethargy [Recovering/Resolving]
  - Haemodynamic instability [Recovering/Resolving]
  - Cardiac tamponade [Recovering/Resolving]
